FAERS Safety Report 10012590 (Version 1)
Quarter: 2014Q1

REPORT INFORMATION
  Report Type: Spontaneous
  Country: TW (occurrence: TW)
  Receive Date: 20140314
  Receipt Date: 20140314
  Transmission Date: 20141002
  Serious: Yes (Other)
  Sender: FDA-Public Use
  Company Number: TW-BRACCO-000015

PATIENT
  Age: 8 Year
  Sex: Male

DRUGS (1)
  1. BARIUM SULFATE [Suspect]
     Indication: X-RAY GASTROINTESTINAL TRACT
     Route: 048

REACTIONS (2)
  - Barium impaction [Unknown]
  - Appendicitis [Unknown]
